FAERS Safety Report 4304126-2 (Version None)
Quarter: 2004Q1

REPORT INFORMATION
  Report Type: 
  Country: None (occurrence: None)
  Receive Date: 20040224
  Receipt Date: 20040210
  Transmission Date: 20041129
  Serious: Yes (Other)
  Sender: FDA-Public Use
  Company Number: 2004-02-0644

PATIENT
  Age: 15 Year
  Sex: Male
  Weight: 58.9676 kg

DRUGS (2)
  1. CORICIDIN [Suspect]
     Dosage: 20 TABLETS ORAL, 1 DOSE
     Route: 048
  2. ALCOHOL [Concomitant]

REACTIONS (4)
  - ALCOHOL USE [None]
  - COMA [None]
  - INCOHERENT [None]
  - OVERDOSE [None]
